FAERS Safety Report 13024600 (Version 1)
Quarter: 2016Q4

REPORT INFORMATION
  Report Type: Spontaneous
  Country: US (occurrence: US)
  Receive Date: 20161213
  Receipt Date: 20161213
  Transmission Date: 20170207
  Serious: Yes (Hospitalization)
  Sender: FDA-Public Use
  Company Number: US-ROCHE-1765238

PATIENT
  Sex: Female

DRUGS (2)
  1. TREANDA [Concomitant]
     Active Substance: BENDAMUSTINE HYDROCHLORIDE
  2. GAZYVA [Suspect]
     Active Substance: OBINUTUZUMAB
     Indication: FOLLICLE CENTRE LYMPHOMA, FOLLICULAR GRADE I, II, III
     Dosage: ON DAY 1, DAY 2 AND DAY 8
     Route: 065

REACTIONS (2)
  - Chronic sinusitis [Unknown]
  - Pneumonia [Recovered/Resolved]
